FAERS Safety Report 7715962-4 (Version None)
Quarter: 2011Q3

REPORT INFORMATION
  Report Type: 
  Country: None (occurrence: None)
  Receive Date: 20110829
  Receipt Date: 20110815
  Transmission Date: 20111222
  Serious: Yes (Hospitalization, Other)
  Sender: FDA-Public Use
  Company Number: CA-ELI_LILLY_AND_COMPANY-CA201102006870

PATIENT
  Age: 62 Year
  Sex: Female
  Weight: 60.9 kg

DRUGS (23)
  1. CLONAZEPAM [Concomitant]
     Dosage: 0.5 MG, QD
  2. RITUXAN [Concomitant]
  3. ARTHROTEC [Concomitant]
     Dosage: 1 DF, QD
  4. EYE DROPS [Concomitant]
     Dosage: UNK, QD
  5. FORTEO [Suspect]
     Dosage: 20 UG, DAILY (1/D)
     Route: 058
     Dates: start: 20110128
  6. CEREZYME [Concomitant]
     Dosage: 3600 UG, UNK
  7. ZOPICLONE [Concomitant]
     Dosage: 7.5 MG, OTHER
     Route: 048
  8. ATACAND [Concomitant]
     Dosage: 16 MG, QD
  9. MULTI-VITAMIN [Concomitant]
     Dosage: 1 DF, QD
  10. VITAMIN B COMPLEX CAP [Concomitant]
     Dosage: 1 DF, QD
  11. PREDNISONE [Concomitant]
     Dosage: 10 MG, UNK
     Route: 048
  12. FORTEO [Suspect]
     Indication: OSTEOPOROSIS
     Dosage: 20 UG, DAILY (1/D)
     Route: 058
     Dates: start: 20090527, end: 20110124
  13. PAXIL [Concomitant]
  14. CALCIUM CARBONATE [Concomitant]
     Dosage: 1000 MG, QD
  15. SULFASALAZINE [Concomitant]
     Dosage: 500 MG, UNK
  16. OXYCONTIN [Concomitant]
     Dosage: 20 MG, OTHER
  17. FERROUS GLUCONATE [Concomitant]
     Dosage: 1 DF, BID
  18. FISH OIL [Concomitant]
     Dosage: UNK, QD
  19. GLUCOSAMINE SULFATE [Concomitant]
     Dosage: UNK, QD
  20. VITAMIN D [Concomitant]
     Dosage: 4000 IU, QD
  21. RITUXAN [Concomitant]
  22. FOLIC ACID [Concomitant]
     Dosage: 1 MG, QD
  23. PAROXETINE HCL [Concomitant]
     Dosage: 30 MG, QD

REACTIONS (3)
  - COLON ADENOMA [None]
  - SCAPULA FRACTURE [None]
  - RHEUMATOID ARTHRITIS [None]
